FAERS Safety Report 10392393 (Version 1)
Quarter: 2014Q3

REPORT INFORMATION
  Report Type: Spontaneous
  Country: US (occurrence: None)
  Receive Date: 20140815
  Receipt Date: 20140815
  Transmission Date: 20150326
  Serious: Yes (Other)
  Sender: FDA-Public Use
  Company Number: 2014COV00081

PATIENT
  Age: 84 Year
  Sex: Male
  Weight: 70.3 kg

DRUGS (4)
  1. DILTIAZEM [Suspect]
     Active Substance: DILTIAZEM
  2. LANOXIN [Suspect]
     Active Substance: DIGOXIN
     Indication: HEART INJURY
     Route: 048
     Dates: start: 2007
  3. TERAZOSIN [Suspect]
     Active Substance: TERAZOSIN\TERAZOSIN HYDROCHLORIDE
  4. LANOXIN [Suspect]
     Active Substance: DIGOXIN
     Indication: CARDIAC PACEMAKER INSERTION
     Route: 048
     Dates: start: 2007

REACTIONS (3)
  - Heart rate decreased [None]
  - Extrasystoles [None]
  - Atrial fibrillation [None]

NARRATIVE: CASE EVENT DATE: 201405
